FAERS Safety Report 10646258 (Version 1)
Quarter: 2014Q4

REPORT INFORMATION
  Report Type: Spontaneous
  Country: IT (occurrence: IT)
  Receive Date: 20141211
  Receipt Date: 20141211
  Transmission Date: 20150529
  Serious: Yes (Hospitalization)
  Sender: FDA-Public Use
  Company Number: IT-ASTRAZENECA-2014SE93956

PATIENT
  Age: 27775 Day
  Sex: Female

DRUGS (6)
  1. BIVIS [Concomitant]
     Active Substance: AMLODIPINE BESYLATE\OLMESARTAN MEDOXOMIL
     Route: 048
  2. METFORMIN [Concomitant]
     Active Substance: METFORMIN HYDROCHLORIDE
     Route: 048
  3. CARDIOASPIRIN [Concomitant]
     Active Substance: ASPIRIN
  4. INSULIN RAPID [Concomitant]
     Active Substance: INSULIN NOS
     Dosage: 4+6+6.
     Route: 058
  5. INFLUENZA VACCINATION [Concomitant]
     Dates: start: 20141114
  6. CRESTOR [Suspect]
     Active Substance: ROSUVASTATIN CALCIUM
     Indication: CAROTID ENDARTERECTOMY
     Route: 048
     Dates: start: 201212, end: 20141118

REACTIONS (4)
  - Blood creatine phosphokinase increased [Recovered/Resolved with Sequelae]
  - Myalgia [Recovered/Resolved with Sequelae]
  - Acute kidney injury [Recovered/Resolved with Sequelae]
  - Myoglobin blood increased [Recovered/Resolved with Sequelae]

NARRATIVE: CASE EVENT DATE: 20141118
